FAERS Safety Report 18956395 (Version 1)
Quarter: 2021Q1

REPORT INFORMATION
  Report Type: Spontaneous
  Country: US (occurrence: US)
  Receive Date: 20210302
  Receipt Date: 20210302
  Transmission Date: 20210420
  Serious: Yes (Death)
  Sender: FDA-Public Use
  Company Number: US-ROCHE-2778940

PATIENT
  Age: 71 Year
  Sex: Male

DRUGS (15)
  1. LUCENTIS [Suspect]
     Active Substance: RANIBIZUMAB
  2. LUCENTIS [Suspect]
     Active Substance: RANIBIZUMAB
  3. LUCENTIS [Suspect]
     Active Substance: RANIBIZUMAB
  4. LUCENTIS [Suspect]
     Active Substance: RANIBIZUMAB
  5. ATORVASTATIN CALCIUM. [Concomitant]
     Active Substance: ATORVASTATIN CALCIUM
  6. LUCENTIS [Suspect]
     Active Substance: RANIBIZUMAB
  7. CARVEDILOL. [Concomitant]
     Active Substance: CARVEDILOL
  8. LUCENTIS [Suspect]
     Active Substance: RANIBIZUMAB
     Indication: MACULAR OEDEMA
  9. LUCENTIS [Suspect]
     Active Substance: RANIBIZUMAB
     Indication: TYPE 2 DIABETES MELLITUS
     Dosage: 0.3 MG INTRAVITREALLY INTO BOTH EYES EVERY 4 WEEKS?PFS 0.3MG 0.05 ML
     Route: 050
  10. LUCENTIS [Suspect]
     Active Substance: RANIBIZUMAB
  11. MULTIVITAMIN [Concomitant]
     Active Substance: VITAMINS
  12. PLAVIX [Concomitant]
     Active Substance: CLOPIDOGREL BISULFATE
  13. LUCENTIS [Suspect]
     Active Substance: RANIBIZUMAB
     Indication: DIABETIC RETINOPATHY
  14. ASPIRIN CHILDREN [Concomitant]
     Active Substance: ASPIRIN
  15. LOSARTAN POTASSIUM. [Concomitant]
     Active Substance: LOSARTAN POTASSIUM

REACTIONS (1)
  - Death [Fatal]

NARRATIVE: CASE EVENT DATE: 20210203
